FAERS Safety Report 11279232 (Version 1)
Quarter: 2015Q3

REPORT INFORMATION
  Report Type: Spontaneous
  Country: US (occurrence: US)
  Receive Date: 20150717
  Receipt Date: 20150717
  Transmission Date: 20151125
  Serious: No
  Sender: FDA-Public Use
  Company Number: US-PFIZER INC-2015235140

PATIENT
  Age: 14 Year
  Sex: Female

DRUGS (1)
  1. NEURONTIN [Suspect]
     Active Substance: GABAPENTIN
     Indication: COMPLEX REGIONAL PAIN SYNDROME
     Dosage: 200 MG, 2X/DAY (100 MG CAPSULES, 2 IN THE MORNING AND 2 AT BED TIME)

REACTIONS (1)
  - Abdominal discomfort [Unknown]
